FAERS Safety Report 6119817-0 (Version None)
Quarter: 2009Q1

REPORT INFORMATION
  Report Type: 
  Country: None (occurrence: None)
  Receive Date: 20090316
  Receipt Date: 20090302
  Transmission Date: 20090719
  Serious: Yes (Hospitalization)
  Sender: FDA-Public Use
  Company Number: DE-PFIZER INC-2009177363

PATIENT

DRUGS (2)
  1. DOXORUBICIN HCL [Suspect]
     Indication: BREAST CANCER
     Dosage: 110.12 MG, CYCLIC
     Dates: start: 20081211, end: 20081211
  2. CYCLOPHOSPHAMIDE [Suspect]
     Indication: BREAST CANCER
     Dosage: 1101.2 MG, CYCLIC
     Dates: start: 20081211, end: 20081211

REACTIONS (1)
  - INFLUENZA [None]
